FAERS Safety Report 25221280 (Version 1)
Quarter: 2025Q2

REPORT INFORMATION
  Report Type: Spontaneous
  Country: US (occurrence: US)
  Receive Date: 20250421
  Receipt Date: 20250421
  Transmission Date: 20250717
  Serious: Yes (Disabling)
  Sender: EDGEWELL PERSONAL CARE BRANDS
  Company Number: US-Edgewell Personal Care, LLC-2175277

PATIENT
  Age: 11 Year
  Sex: Female

DRUGS (1)
  1. AVOBENZONE\HOMOSALATE\OCTOCRYLENE [Suspect]
     Active Substance: AVOBENZONE\HOMOSALATE\OCTOCRYLENE
     Indication: Prophylaxis against solar radiation
     Dates: start: 20250405, end: 20250405

REACTIONS (3)
  - Sunburn [Not Recovered/Not Resolved]
  - Impaired work ability [Not Recovered/Not Resolved]
  - Blister [Not Recovered/Not Resolved]

NARRATIVE: CASE EVENT DATE: 20250405
